FAERS Safety Report 5146320-7 (Version None)
Quarter: 2006Q4

REPORT INFORMATION
  Report Type: 
  Country: None (occurrence: None)
  Receive Date: 20061102
  Receipt Date: 20061019
  Transmission Date: 20070319
  Serious: Yes (Hospitalization)
  Sender: FDA-Public Use
  Company Number: 2006106917

PATIENT
  Age: 61 Year
  Sex: Female
  Weight: 56 kg

DRUGS (11)
  1. SUTENT [Suspect]
     Indication: RENAL CELL CARCINOMA STAGE UNSPECIFIED
     Dosage: SEE IMAGE
     Route: 048
     Dates: start: 20060818, end: 20060914
  2. SUTENT [Suspect]
     Indication: RENAL CELL CARCINOMA STAGE UNSPECIFIED
     Dosage: SEE IMAGE
     Route: 048
     Dates: start: 20060928, end: 20061004
  3. SUTENT [Suspect]
     Indication: RENAL CELL CARCINOMA STAGE UNSPECIFIED
     Dosage: SEE IMAGE
     Route: 048
     Dates: start: 20061011
  4. GLYBURIDE [Concomitant]
  5. CHLORTALIDONE (CHLORTALIDONE) [Concomitant]
  6. RANITIDINE [Concomitant]
  7. AMIKACIN [Concomitant]
  8. DIPIRONE (METAMIZOLE) [Concomitant]
  9. CEFOTAXIME SODIUM [Concomitant]
  10. LOPERAMIDE HCL [Concomitant]
  11. ACETAMINOPHEN [Concomitant]

REACTIONS (2)
  - ENTEROCUTANEOUS FISTULA [None]
  - HAEMOGLOBIN DECREASED [None]
